FAERS Safety Report 4875269-X (Version None)
Quarter: 2006Q1

REPORT INFORMATION
  Report Type: 
  Country: None (occurrence: None)
  Receive Date: 20060109
  Receipt Date: 20020730
  Transmission Date: 20060701
  Serious: Yes (Hospitalization, Disabling, Other)
  Sender: FDA-Public Use
  Company Number: US-MERCK-0207USA02813

PATIENT
  Age: 44 Year
  Sex: Female
  Weight: 99 kg

DRUGS (1)
  1. VIOXX [Suspect]
     Indication: PAIN
     Route: 048
     Dates: start: 20020101, end: 20040101

REACTIONS (14)
  - ARTHROPATHY [None]
  - BLOOD URINE PRESENT [None]
  - CALCULUS URETERIC [None]
  - CARDIAC DISORDER [None]
  - CEREBROVASCULAR ACCIDENT [None]
  - DIABETES MELLITUS [None]
  - DIZZINESS [None]
  - MYOCARDIAL INFARCTION [None]
  - NERVOUSNESS [None]
  - OBESITY [None]
  - OESTROGEN DEFICIENCY [None]
  - OVERDOSE [None]
  - PAIN [None]
  - STAPHYLOCOCCAL INFECTION [None]
